FAERS Safety Report 5202762-2 (Version None)
Quarter: 2007Q1

REPORT INFORMATION
  Report Type: 
  Country: None (occurrence: None)
  Receive Date: 20070109
  Receipt Date: 20070103
  Transmission Date: 20070707
  Serious: Yes (Other)
  Sender: FDA-Public Use
  Company Number: FR-PFIZER INC-2007001140

PATIENT
  Age: 56 Year
  Sex: Female

DRUGS (1)
  1. LYRICA [Suspect]
     Indication: NEURALGIA

REACTIONS (4)
  - CONSTIPATION [None]
  - DIPLOPIA [None]
  - DISORIENTATION [None]
  - GENERALISED OEDEMA [None]
